FAERS Safety Report 19147808 (Version 2)
Quarter: 2021Q2

REPORT INFORMATION
  Report Type: Report from Study
  Country: DE (occurrence: DE)
  Receive Date: 20210416
  Receipt Date: 20210502
  Transmission Date: 20210717
  Serious: Yes (Other)
  Sender: FDA-Public Use
  Company Number: NVSC2019DE014785

PATIENT
  Sex: Female

DRUGS (21)
  1. PREDNISOLONE. [Concomitant]
     Active Substance: PREDNISOLONE
     Indication: RASH ERYTHEMATOUS
     Dosage: 100 MG
     Route: 065
     Dates: start: 20190130, end: 20190130
  2. PREDNISOLONE. [Concomitant]
     Active Substance: PREDNISOLONE
     Dosage: 40 MG
     Route: 065
     Dates: start: 20190203, end: 20190204
  3. NOVALGIN [Concomitant]
     Indication: PAIN
     Dosage: 500 MG
     Route: 065
     Dates: start: 20210227, end: 20210302
  4. LEVOTHYROXINE SODIUM. [Concomitant]
     Active Substance: LEVOTHYROXINE SODIUM
     Indication: HYPOTHYROIDISM
     Dosage: 100 UG
     Route: 065
     Dates: start: 20170101
  5. ACC AKUT [Concomitant]
     Active Substance: ACETYLCYSTEINE
     Indication: NASOPHARYNGITIS
     Dosage: 600 MG
     Route: 065
     Dates: start: 20190926, end: 20190927
  6. L?THYROXINE [Concomitant]
     Active Substance: LEVOTHYROXINE
     Indication: HYPOTHYROIDISM
     Dosage: 100 UG
     Route: 065
     Dates: start: 20170101
  7. PREDNISOLONE. [Concomitant]
     Active Substance: PREDNISOLONE
     Dosage: 80 MG
     Route: 065
     Dates: start: 20190131, end: 20190131
  8. PREDNISOLONE. [Concomitant]
     Active Substance: PREDNISOLONE
     Dosage: 20 MG
     Route: 065
     Dates: start: 20190205, end: 20190205
  9. IBUPROFEN. [Concomitant]
     Active Substance: IBUPROFEN
     Indication: NASOPHARYNGITIS
     Dosage: 400 MG (AS NEEDED)
     Route: 065
     Dates: start: 20190112, end: 20190124
  10. GILENYA [Suspect]
     Active Substance: FINGOLIMOD HYDROCHLORIDE
     Indication: MULTIPLE SCLEROSIS
     Dosage: 0.5 MG, QD
     Route: 048
     Dates: start: 20180411
  11. DESOGESTREL [Concomitant]
     Active Substance: DESOGESTREL
     Indication: CONTRACEPTION
     Dosage: 75 UG
     Route: 065
     Dates: start: 20160601
  12. AMANTADINE. [Concomitant]
     Active Substance: AMANTADINE HYDROCHLORIDE
     Dosage: 100 MG
     Route: 065
     Dates: start: 20190401, end: 201911
  13. AZITHROMYCIN ANHYDROUS. [Concomitant]
     Active Substance: AZITHROMYCIN ANHYDROUS
     Indication: NASOPHARYNGITIS
     Dosage: 250 MG
     Route: 065
     Dates: start: 20190121, end: 20190123
  14. ADVANTAN MILK [Concomitant]
     Indication: RASH ERYTHEMATOUS
     Dosage: UNK UNK, PRN
     Route: 065
     Dates: start: 20190130, end: 20190206
  15. NASENSPRAY RATIOPHARM [Concomitant]
     Indication: NASOPHARYNGITIS
     Dosage: UNK UNK, PRN
     Route: 065
     Dates: start: 20190112, end: 20190124
  16. GRIPPOSTAD C [Concomitant]
     Active Substance: ACETAMINOPHEN\ASCORBIC ACID\CAFFEINE\CHLORPHENIRAMINE MALEATE
     Indication: NASOPHARYNGITIS
     Dosage: UNK UNK, PRN
     Route: 065
     Dates: start: 20190112, end: 20190124
  17. FENISTIL [Concomitant]
     Active Substance: DIMETHINDENE
     Indication: SKIN REACTION
     Dosage: 1 DF, QD (1 MG/G)
     Route: 065
     Dates: start: 20191011, end: 20191012
  18. AMANTADINE. [Concomitant]
     Active Substance: AMANTADINE HYDROCHLORIDE
     Indication: FATIGUE
     Dosage: 50 MG
     Route: 065
     Dates: start: 20190109, end: 201904
  19. CETRIZINE [Concomitant]
     Active Substance: CETIRIZINE HYDROCHLORIDE
     Indication: RASH ERYTHEMATOUS
     Dosage: UNK UNK, PRN
     Route: 065
     Dates: start: 20190130, end: 20190206
  20. NASENTROPFEN ^RATIOPHARM^ [Concomitant]
     Indication: NASOPHARYNGITIS
     Dosage: UNK (2?3 TIMES DAILY)
     Route: 065
     Dates: start: 20181002, end: 20181018
  21. PREDNISOLONE. [Concomitant]
     Active Substance: PREDNISOLONE
     Dosage: 60 MG
     Route: 065
     Dates: start: 20190201, end: 20190202

REACTIONS (4)
  - Hypertension [Not Recovered/Not Resolved]
  - Headache [Not Recovered/Not Resolved]
  - Depression [Not Recovered/Not Resolved]
  - Ophthalmic herpes zoster [Not Recovered/Not Resolved]

NARRATIVE: CASE EVENT DATE: 20191001
